FAERS Safety Report 6439733-4 (Version None)
Quarter: 2009Q4

REPORT INFORMATION
  Report Type: 
  Country: None (occurrence: None)
  Receive Date: 20091113
  Receipt Date: 20091110
  Transmission Date: 20100525
  Serious: Yes (Other)
  Sender: FDA-Public Use
  Company Number: CA-ROCHE-668008

PATIENT
  Sex: Female

DRUGS (2)
  1. TAMIFLU [Suspect]
     Route: 048
     Dates: start: 20091109
  2. AREPANRIX [Suspect]
     Dosage: REPORTED AS 1 DOSE
     Route: 030
     Dates: start: 20091109

REACTIONS (2)
  - HYPOAESTHESIA [None]
  - PARAESTHESIA [None]
